FAERS Safety Report 6257379-8 (Version None)
Quarter: 2009Q3

REPORT INFORMATION
  Report Type: 
  Country: None (occurrence: None)
  Receive Date: 20090706
  Receipt Date: 20090624
  Transmission Date: 20100115
  Serious: Yes (Hospitalization, Other)
  Sender: FDA-Public Use
  Company Number: US-PFIZER INC-2009232668

PATIENT
  Sex: Female

DRUGS (1)
  1. DILANTIN-125 [Suspect]
     Dosage: UNK
     Route: 048
     Dates: start: 19560101

REACTIONS (9)
  - ANKLE FRACTURE [None]
  - BONE MARROW DISORDER [None]
  - FEMORAL NECK FRACTURE [None]
  - GINGIVAL HYPERPLASIA [None]
  - HIP FRACTURE [None]
  - LIP SWELLING [None]
  - LOWER LIMB FRACTURE [None]
  - LYMPHADENOPATHY [None]
  - WRIST FRACTURE [None]
